FAERS Safety Report 13810264 (Version 2)
Quarter: 2017Q3

REPORT INFORMATION
  Report Type: Report from Study
  Country: US (occurrence: US)
  Receive Date: 20170728
  Receipt Date: 20170729
  Transmission Date: 20171127
  Serious: No
  Sender: FDA-Public Use
  Company Number: US-AMGEN-USASL2017083949

PATIENT
  Age: 54 Year
  Sex: Female
  Weight: 76.64 kg

DRUGS (11)
  1. REPATHA [Suspect]
     Active Substance: EVOLOCUMAB
     Indication: HYPERCHOLESTEROLAEMIA
     Dosage: 140 MG, Q2WK
     Route: 058
     Dates: start: 20160728
  2. COENZYME Q10 [Concomitant]
     Active Substance: UBIDECARENONE
     Dosage: 200 MG, QD
     Route: 048
  3. VITAMIN B12 [Concomitant]
     Active Substance: CYANOCOBALAMIN
     Dosage: 50 MUG/ML, Q2WK
     Route: 065
     Dates: start: 20170515
  4. INSULIN [Concomitant]
     Active Substance: INSULIN NOS
     Dosage: 1 ML 28 X 1/2, BID
  5. CENTRUM [Concomitant]
     Active Substance: VITAMINS
     Dosage: 3500-18-0.4 QD
     Route: 048
  6. VASCEPA [Concomitant]
     Active Substance: ICOSAPENT ETHYL
     Dosage: 1 G, BID
     Route: 048
  7. REPATHA [Suspect]
     Active Substance: EVOLOCUMAB
     Dosage: 140 MG, Q3WK
     Route: 058
  8. PLAVIX [Concomitant]
     Active Substance: CLOPIDOGREL BISULFATE
     Dosage: 75 MG, QD
     Route: 048
  9. KLONOPIN [Concomitant]
     Active Substance: CLONAZEPAM
     Dosage: 0.5 MG, AS NECESSARY
     Route: 048
  10. RAPAFLO [Concomitant]
     Active Substance: SILODOSIN
     Dosage: 8 MG, QD
     Route: 048
  11. NITROGLYCERIN. [Concomitant]
     Active Substance: NITROGLYCERIN
     Dosage: 0.4 MG, AS NECESSARY
     Route: 060

REACTIONS (8)
  - Arthralgia [Recovered/Resolved]
  - Low density lipoprotein increased [Unknown]
  - Alanine aminotransferase increased [Unknown]
  - Feeling abnormal [Unknown]
  - Abdominal pain [Unknown]
  - Fatigue [Unknown]
  - Influenza like illness [Unknown]
  - Off label use [Unknown]

NARRATIVE: CASE EVENT DATE: 20170508
